FAERS Safety Report 9845490 (Version 1)
Quarter: 2014Q1

REPORT INFORMATION
  Report Type: Report from Study
  Country: US (occurrence: US)
  Receive Date: 20140127
  Receipt Date: 20140127
  Transmission Date: 20141002
  Serious: No
  Sender: FDA-Public Use
  Company Number: PHEH2014US001691

PATIENT
  Sex: Female

DRUGS (4)
  1. TASIGNA [Suspect]
     Indication: CHRONIC MYELOID LEUKAEMIA
     Dosage: 300 MG (TWICE A DAY)
     Route: 048
     Dates: start: 20131117
  2. MEGACE ES [Concomitant]
     Dosage: UNK UKN, UNK
  3. LISINOPRIL [Concomitant]
     Dosage: UNK UKN, UNK
  4. SYNTHROID [Concomitant]
     Dosage: UNK UKN, UNK

REACTIONS (2)
  - Rash generalised [Recovered/Resolved]
  - Nausea [Recovered/Resolved]
